FAERS Safety Report 9114819 (Version 1)
Quarter: 2013Q1

REPORT INFORMATION
  Report Type: Spontaneous
  Country: US (occurrence: None)
  Receive Date: 20130220
  Receipt Date: 20130220
  Transmission Date: 20140127
  Serious: Yes (Other)
  Sender: FDA-Public Use
  Company Number: None

PATIENT
  Sex: Male
  Weight: 97.98 kg

DRUGS (2)
  1. DOXYCYCLINE [Suspect]
     Route: 048
     Dates: start: 20130102
  2. MINOCYCLINE 100 MG [Suspect]
     Route: 048

REACTIONS (2)
  - Abdominal discomfort [None]
  - Headache [None]
